FAERS Safety Report 6845828-3 (Version None)
Quarter: 2010Q3

REPORT INFORMATION
  Report Type: 
  Country: None (occurrence: None)
  Receive Date: 20100715
  Receipt Date: 20071024
  Transmission Date: 20110219
  Serious: No
  Sender: FDA-Public Use
  Company Number: US-PFIZER INC-2007071950

PATIENT
  Sex: Male
  Weight: 93.2 kg

DRUGS (8)
  1. CHANTIX [Suspect]
     Indication: SMOKING CESSATION THERAPY
     Dates: start: 20070101
  2. SYMBICORT [Concomitant]
     Indication: DYSPNOEA
     Route: 055
  3. SEROQUEL [Concomitant]
  4. VYTORIN [Concomitant]
  5. PAXIL [Concomitant]
  6. RISPERDAL [Concomitant]
  7. VALSARTAN [Concomitant]
  8. PRILOSEC [Concomitant]

REACTIONS (2)
  - ABNORMAL DREAMS [None]
  - NIGHTMARE [None]
